FAERS Safety Report 19157216 (Version 1)
Quarter: 2021Q2

REPORT INFORMATION
  Report Type: Spontaneous
  Country: US (occurrence: US)
  Receive Date: 20210419
  Receipt Date: 20210419
  Transmission Date: 20210717
  Serious: Yes (Hospitalization)
  Sender: FDA-Public Use
  Company Number: None

PATIENT
  Age: 37 Year
  Sex: Female
  Weight: 103 kg

DRUGS (1)
  1. BAMLANIVIMAB?ETESEVIMAB [Suspect]
     Active Substance: BAMLANIVIMAB\ETESEVIMAB
     Indication: COVID-19
     Route: 042
     Dates: start: 20210413, end: 20210413

REACTIONS (3)
  - Urinary tract infection [None]
  - Pain in extremity [None]
  - COVID-19 pneumonia [None]

NARRATIVE: CASE EVENT DATE: 20210414
